FAERS Safety Report 6443986-6 (Version None)
Quarter: 2009Q4

REPORT INFORMATION
  Report Type: 
  Country: None (occurrence: None)
  Receive Date: 20091116
  Receipt Date: 20091116
  Transmission Date: 20100525
  Serious: Yes (Other)
  Sender: FDA-Public Use
  Company Number: None

PATIENT
  Sex: Female
  Weight: 53.0709 kg

DRUGS (1)
  1. CYMBALTA [Suspect]
     Indication: FIBROMYALGIA
     Dosage: 60MG DAILY PO
     Route: 048
     Dates: start: 20090401, end: 20091112

REACTIONS (2)
  - PRODUCT QUALITY ISSUE [None]
  - WITHDRAWAL SYNDROME [None]
